FAERS Safety Report 9899081 (Version 1)
Quarter: 2014Q1

REPORT INFORMATION
  Report Type: Report from Study
  Country: US (occurrence: US)
  Receive Date: 20140214
  Receipt Date: 20140214
  Transmission Date: 20141002
  Serious: No
  Sender: FDA-Public Use
  Company Number: US-B.I. PHARMACEUTICALS,INC./RIDGEFIELD-2014-BI-05162BI

PATIENT
  Age: 55 Year
  Sex: Male

DRUGS (9)
  1. GILOTRIF [Suspect]
     Indication: NON-SMALL CELL LUNG CANCER
     Dosage: 40 MG
     Route: 048
     Dates: start: 20140124, end: 20140207
  2. GILOTRIF [Suspect]
     Dosage: 40 MG
     Route: 048
     Dates: start: 20140125
  3. MORPHINE PO [Concomitant]
     Route: 048
  4. OXYCODONE [Concomitant]
  5. PHENERGAN [Concomitant]
  6. PRILOSEC [Concomitant]
  7. GABAPENTIN [Concomitant]
  8. LORAZEPAM [Concomitant]
  9. LISINOPRIL PRN [Concomitant]

REACTIONS (7)
  - Pain [Not Recovered/Not Resolved]
  - Fatigue [Not Recovered/Not Resolved]
  - Thermal burn [Not Recovered/Not Resolved]
  - Glossodynia [Not Recovered/Not Resolved]
  - Epistaxis [Not Recovered/Not Resolved]
  - Nasal discomfort [Not Recovered/Not Resolved]
  - Pain [Not Recovered/Not Resolved]
